FAERS Safety Report 6039521-7 (Version None)
Quarter: 2009Q1

REPORT INFORMATION
  Report Type: 
  Country: None (occurrence: None)
  Receive Date: 20090107
  Receipt Date: 20081230
  Transmission Date: 20090719
  Serious: Yes (Disabling)
  Sender: FDA-Public Use
  Company Number: 200814409

PATIENT
  Age: 15 Year
  Sex: Female
  Weight: 53.978 kg

DRUGS (5)
  1. VIVAGLOBIN [Suspect]
     Indication: IMMUNODEFICIENCY
     Dosage: 60 ML Q1W SC
     Route: 058
     Dates: start: 20081109, end: 20081109
  2. VIVAGLOBIN [Suspect]
     Indication: IMMUNODEFICIENCY
     Dosage: 60 ML Q1W SC
     Route: 058
     Dates: start: 20081001
  3. VIVAGLOBIN [Suspect]
  4. VIVAGLOBIN [Suspect]
  5. ZANTAC [Concomitant]

REACTIONS (7)
  - COMPLEX REGIONAL PAIN SYNDROME [None]
  - INJECTION SITE SWELLING [None]
  - MOVEMENT DISORDER [None]
  - PAIN [None]
  - SKIN DISCOLOURATION [None]
  - SWELLING [None]
  - WRONG TECHNIQUE IN DRUG USAGE PROCESS [None]
